FAERS Safety Report 8276429-0 (Version None)
Quarter: 2012Q2

REPORT INFORMATION
  Report Type: 
  Country: None (occurrence: None)
  Receive Date: 20120412
  Receipt Date: 20120410
  Transmission Date: 20120825
  Serious: Yes (Other)
  Sender: FDA-Public Use
  Company Number: US-JNJFOC-20120404795

PATIENT
  Sex: Male
  Weight: 127.01 kg

DRUGS (12)
  1. SIMPONI [Suspect]
     Indication: RHEUMATOID ARTHRITIS
     Route: 058
     Dates: start: 20120404
  2. CYMBALTA [Concomitant]
     Route: 048
     Dates: start: 20110301
  3. SIMPONI [Suspect]
     Indication: ANKYLOSING SPONDYLITIS
     Route: 058
     Dates: start: 20120404
  4. NORCO [Concomitant]
     Indication: ANKYLOSING SPONDYLITIS
     Route: 048
     Dates: start: 20100101
  5. ASACOL [Concomitant]
     Indication: GASTROINTESTINAL DISORDER
     Route: 048
     Dates: start: 20110101
  6. ROBAXIN [Concomitant]
     Indication: MUSCLE RELAXANT THERAPY
     Route: 048
     Dates: start: 20100101
  7. CYMBALTA [Concomitant]
     Indication: NERVOUSNESS
     Route: 048
     Dates: start: 20110301
  8. HYDROCHLOROTHIAZIDE [Concomitant]
     Indication: OEDEMA
     Route: 048
     Dates: start: 20100101
  9. ACYCLOVIR [Concomitant]
     Indication: PROPHYLAXIS
     Route: 048
     Dates: start: 20110101
  10. NORCO [Concomitant]
     Indication: ARTHRALGIA
     Route: 048
     Dates: start: 20100101
  11. NEURONTIN [Concomitant]
     Indication: NEURALGIA
     Dosage: 600 MG TWICE A DAY, ADDITIONAL 1200 MG AT NIGHT
     Dates: start: 20110101
  12. XANAX [Concomitant]
     Indication: INSOMNIA
     Route: 048
     Dates: start: 20030101

REACTIONS (1)
  - ONYCHOMADESIS [None]
